FAERS Safety Report 17859556 (Version 1)
Quarter: 2020Q2

REPORT INFORMATION
  Report Type: Spontaneous
  Country: US (occurrence: US)
  Receive Date: 20200604
  Receipt Date: 20200604
  Transmission Date: 20200714
  Serious: Yes (Hospitalization)
  Sender: FDA-Public Use
  Company Number: US-BEH-2020118154

PATIENT
  Age: 6 Month
  Sex: Male

DRUGS (4)
  1. IDELVION [Suspect]
     Active Substance: COAGULATION FACTOR IX RECOMBINANT HUMAN
     Indication: CSF SHUNT OPERATION
  2. IDELVION [Suspect]
     Active Substance: COAGULATION FACTOR IX RECOMBINANT HUMAN
     Indication: SURGERY
     Dosage: 750 INTERNATIONAL UNIT, BID, Q12 HOURS
     Route: 065
     Dates: start: 202005
  3. IDELVION [Suspect]
     Active Substance: COAGULATION FACTOR IX RECOMBINANT HUMAN
     Indication: SURGERY
     Dosage: 750 INTERNATIONAL UNIT, BID, Q12 HOURS
     Route: 065
     Dates: start: 202005
  4. IDELVION [Suspect]
     Active Substance: COAGULATION FACTOR IX RECOMBINANT HUMAN
     Indication: CSF SHUNT OPERATION

REACTIONS (1)
  - Intracranial pressure increased [Unknown]
